FAERS Safety Report 17969629 (Version 3)
Quarter: 2020Q4

REPORT INFORMATION
  Report Type: Report from Study
  Country: KR (occurrence: KR)
  Receive Date: 20200701
  Receipt Date: 20201030
  Transmission Date: 20210113
  Serious: Yes (Hospitalization)
  Sender: FDA-Public Use
  Company Number: KR-EISAI MEDICAL RESEARCH-EC-2020-076545

PATIENT
  Age: 34 Year
  Sex: Female
  Weight: 59.7 kg

DRUGS (2)
  1. ERIBULIN [Suspect]
     Active Substance: ERIBULIN
     Indication: HER2 NEGATIVE BREAST CANCER
     Route: 042
     Dates: start: 20200513
  2. NIVOLUMAB [Suspect]
     Active Substance: NIVOLUMAB
     Indication: HER2 NEGATIVE BREAST CANCER
     Route: 041
     Dates: start: 20200513

REACTIONS (1)
  - Acute kidney injury [Recovered/Resolved]

NARRATIVE: CASE EVENT DATE: 20200625
